FAERS Safety Report 6563999-3 (Version None)
Quarter: 2010Q1

REPORT INFORMATION
  Report Type: 
  Country: None (occurrence: None)
  Receive Date: 20100131
  Receipt Date: 20100125
  Transmission Date: 20100710
  Serious: Yes (Death)
  Sender: FDA-Public Use
  Company Number: IT-JNJFOC-20100110977

PATIENT
  Age: 73 Year
  Sex: Female
  Weight: 100 kg

DRUGS (1)
  1. RISPERDAL [Suspect]
     Indication: DRUG USE FOR UNKNOWN INDICATION
     Route: 048

REACTIONS (4)
  - CARDIO-RESPIRATORY ARREST [None]
  - PNEUMONITIS [None]
  - RESPIRATORY FAILURE [None]
  - SOPOR [None]
